FAERS Safety Report 11758391 (Version 3)
Quarter: 2016Q1

REPORT INFORMATION
  Report Type: Spontaneous
  Country: US (occurrence: US)
  Receive Date: 20151120
  Receipt Date: 20160303
  Transmission Date: 20160525
  Serious: Yes (Hospitalization, Other)
  Sender: FDA-Public Use
  Company Number: US-PFIZER INC-2015395627

PATIENT
  Age: 48 Year
  Sex: Male

DRUGS (6)
  1. ZIPRASIDONE HCL [Suspect]
     Active Substance: ZIPRASIDONE HYDROCHLORIDE
     Indication: SCHIZOPHRENIA
     Dosage: 40 MG, UNK (20MG ONCE A DAY OR10MG TWICE A DAY)
     Dates: start: 201504
  2. SERTRALINE HCL [Suspect]
     Active Substance: SERTRALINE HYDROCHLORIDE
     Indication: OBSESSIVE-COMPULSIVE DISORDER
  3. SERTRALINE HCL [Suspect]
     Active Substance: SERTRALINE HYDROCHLORIDE
     Indication: POST-TRAUMATIC STRESS DISORDER
  4. SERTRALINE HCL [Suspect]
     Active Substance: SERTRALINE HYDROCHLORIDE
     Indication: PAIN
  5. SERTRALINE HCL [Suspect]
     Active Substance: SERTRALINE HYDROCHLORIDE
     Indication: DEPRESSION
     Dosage: 25 MG, UNK
     Dates: start: 201505, end: 201510
  6. SERTRALINE HCL [Suspect]
     Active Substance: SERTRALINE HYDROCHLORIDE
     Indication: SOCIAL ANXIETY DISORDER

REACTIONS (38)
  - Tardive dyskinesia [Unknown]
  - Irritability [Unknown]
  - Drug hypersensitivity [Unknown]
  - Memory impairment [Unknown]
  - Mental status changes [Not Recovered/Not Resolved]
  - Muscle spasms [Unknown]
  - Delusion of grandeur [Unknown]
  - Mood swings [Unknown]
  - Insomnia [Unknown]
  - Energy increased [Unknown]
  - Obsessive-compulsive disorder [Unknown]
  - Drug ineffective [Unknown]
  - Anxiety [Unknown]
  - Speech disorder [Unknown]
  - Cough [Not Recovered/Not Resolved]
  - Musculoskeletal stiffness [Not Recovered/Not Resolved]
  - Myalgia [Not Recovered/Not Resolved]
  - Rhinorrhoea [Unknown]
  - Dizziness [Unknown]
  - Tremor [Unknown]
  - Agitation [Unknown]
  - Panic attack [Unknown]
  - Judgement impaired [Unknown]
  - Weight decreased [Unknown]
  - Confusional state [Unknown]
  - Arthralgia [Unknown]
  - Somnolence [Unknown]
  - Restlessness [Unknown]
  - Hypersomnia [Unknown]
  - Quality of life decreased [Unknown]
  - Disturbance in attention [Unknown]
  - Impulse-control disorder [Unknown]
  - Abnormal behaviour [Unknown]
  - Mental disorder [Unknown]
  - Social anxiety disorder [Unknown]
  - Choking [Not Recovered/Not Resolved]
  - Anger [Unknown]
  - Pain [Unknown]

NARRATIVE: CASE EVENT DATE: 2015
